FAERS Safety Report 4899381-4 (Version None)
Quarter: 2006Q1

REPORT INFORMATION
  Report Type: 
  Country: None (occurrence: None)
  Receive Date: 20060202
  Receipt Date: 20050531
  Transmission Date: 20060701
  Serious: Yes (Hospitalization)
  Sender: FDA-Public Use
  Company Number: FR-NOVOPROD-244533

PATIENT
  Age: 43 Year
  Sex: Female
  Weight: 61 kg

DRUGS (3)
  1. NORDITROPIN SIMPLEXX [Suspect]
     Indication: POSTPARTUM HYPOPITUITARISM
     Dosage: .6 MG
     Dates: start: 20010824, end: 20041125
  2. HYDROCORTISONE [Concomitant]
     Dosage: 20 MG, UNK
     Dates: start: 20000630
  3. LEVOTHYROX [Concomitant]
     Dosage: 100 UG, UNK
     Dates: start: 20000307

REACTIONS (3)
  - ABORTION SPONTANEOUS [None]
  - CHROMOSOME ABNORMALITY [None]
  - DRUG EXPOSURE DURING PREGNANCY [None]
